FAERS Safety Report 6327703-6 (Version None)
Quarter: 2009Q3

REPORT INFORMATION
  Report Type: 
  Country: None (occurrence: None)
  Receive Date: 20090825
  Receipt Date: 20090815
  Transmission Date: 20100115
  Serious: Yes (Hospitalization)
  Sender: FDA-Public Use
  Company Number: US-JNJCH-2009022393

PATIENT
  Sex: Male
  Weight: 70.3 kg

DRUGS (1)
  1. DRAMAMINE CHEWABLE FORMULA [Suspect]
     Indication: DRUG USE FOR UNKNOWN INDICATION
     Dosage: TEXT:1 TABLE ONCE
     Route: 048
     Dates: start: 20090809, end: 20090809

REACTIONS (2)
  - HALLUCINATION [None]
  - PARANOIA [None]
